FAERS Safety Report 7154128-6 (Version None)
Quarter: 2010Q4

REPORT INFORMATION
  Report Type: 
  Country: None (occurrence: None)
  Receive Date: 20101124
  Receipt Date: 20101111
  Transmission Date: 20110411
  Serious: Yes (Disabling)
  Sender: FDA-Public Use
  Company Number: AUR-APL-2010-02825

PATIENT
  Sex: Female

DRUGS (1)
  1. CITALOPRAM [Suspect]
     Dosage: 40MG - ORAL
     Route: 048

REACTIONS (1)
  - DYSTONIA [None]
